FAERS Safety Report 9467709 (Version 1)
Quarter: 2013Q3

REPORT INFORMATION
  Report Type: Spontaneous
  Country: PK (occurrence: PK)
  Receive Date: 20130821
  Receipt Date: 20130821
  Transmission Date: 20140515
  Serious: Yes (Disabling)
  Sender: FDA-Public Use
  Company Number: PK-SANOFI-AVENTIS-2013SA082709

PATIENT
  Age: 65 Year
  Sex: Female
  Weight: 65 kg

DRUGS (14)
  1. LANTUS SOLOSTAR [Suspect]
     Indication: TYPE 2 DIABETES MELLITUS
     Route: 065
  2. LANTUS SOLOSTAR [Suspect]
     Indication: TYPE 2 DIABETES MELLITUS
     Route: 058
     Dates: start: 201306
  3. SOLOSTAR [Concomitant]
     Indication: DEVICE THERAPY
  4. SOLOSTAR [Concomitant]
     Indication: DEVICE THERAPY
     Dates: start: 201306
  5. ROSUVASTATIN [Concomitant]
  6. PANTOPRAZOLE [Concomitant]
  7. MOTILIUM [Concomitant]
     Dosage: BEFORE BREAKFAST
  8. CALCIUM [Concomitant]
  9. ALFACALCIDOL [Concomitant]
  10. AMLODIPINE/VALSARTAN [Concomitant]
     Dosage: DOSE: 5/160 MG 2 TAB
  11. CLOPIDOGREL [Concomitant]
  12. ISOSORBIDE MONONITRATE [Concomitant]
  13. REPAGLINIDE [Concomitant]
  14. PLATELET AGGREGATION INHIBITORS [Concomitant]

REACTIONS (4)
  - Paraesthesia [Not Recovered/Not Resolved]
  - Burning sensation [Not Recovered/Not Resolved]
  - Blood glucose abnormal [Not Recovered/Not Resolved]
  - Drug ineffective [Unknown]
